FAERS Safety Report 8787036 (Version 1)
Quarter: 2012Q4

REPORT INFORMATION
  Report Type: 
  Country: US (occurrence: US)
  Receive Date: 20120914
  Receipt Date: 20120914
  Transmission Date: 20130627
  Serious: No
  Sender: FDA-Public Use
  Company Number: US-VERTEX PHARMACEUTICAL INC.-AE-2012-009685

PATIENT

DRUGS (6)
  1. INCIVEK [Suspect]
     Indication: HEPATITIS C
     Route: 048
     Dates: start: 20120511
  2. PEGASYS [Concomitant]
     Indication: HEPATITIS C
     Dates: start: 20120511
  3. RIBAVIRIN [Concomitant]
     Indication: HEPATITIS C
     Dates: start: 20120511
  4. HYDROXYZINE [Concomitant]
  5. POTASSIUM CHLORIDE [Concomitant]
  6. LISINOPRIL-HYDROCHLOROTHYAZIDE [Concomitant]

REACTIONS (4)
  - Skin lesion [Unknown]
  - Dry skin [Unknown]
  - Rash [Unknown]
  - Pruritus [Unknown]
